FAERS Safety Report 20723640 (Version 1)
Quarter: 2022Q2

REPORT INFORMATION
  Report Type: Other
  Country: CA (occurrence: CA)
  Receive Date: 20220419
  Receipt Date: 20220419
  Transmission Date: 20220720
  Serious: Yes (Other)
  Sender: FDA-Public Use
  Company Number: CA-APOTEX-2022AP004821

PATIENT
  Age: 42 Year
  Sex: Male

DRUGS (7)
  1. GABAPENTIN [Suspect]
     Active Substance: GABAPENTIN
     Indication: Restlessness
     Dosage: 600 MILLIGRAM
     Route: 065
  2. GABAPENTIN [Suspect]
     Active Substance: GABAPENTIN
     Indication: Anxiety
     Dosage: UNK
     Route: 065
  3. GABAPENTIN [Suspect]
     Active Substance: GABAPENTIN
     Indication: Drug withdrawal syndrome
     Dosage: 50 MILLIGRAM
     Route: 065
  4. FENTANYL [Suspect]
     Active Substance: FENTANYL
     Indication: Substance use
     Dosage: UNK
     Route: 050
  5. BUPRENORPHINE\NALOXONE [Suspect]
     Active Substance: BUPRENORPHINE\NALOXONE
     Indication: Drug use disorder
     Dosage: UNK
     Route: 065
  6. BUPRENORPHINE [Concomitant]
     Active Substance: BUPRENORPHINE
     Indication: Drug use disorder
     Dosage: 2.0 MILLIGRAM
     Route: 048
  7. NALOXONE [Concomitant]
     Active Substance: NALOXONE
     Indication: Drug use disorder
     Dosage: 0.5 MILLIGRAM
     Route: 048

REACTIONS (4)
  - Substance use [Unknown]
  - Off label use [Recovered/Resolved]
  - Drug withdrawal syndrome [Unknown]
  - Drug ineffective for unapproved indication [Recovered/Resolved]
